FAERS Safety Report 10152386 (Version 1)
Quarter: 2014Q2

REPORT INFORMATION
  Report Type: Spontaneous
  Country: US (occurrence: None)
  Receive Date: 20140502
  Receipt Date: 20140502
  Transmission Date: 20141212
  Serious: Yes (Disabling)
  Sender: FDA-Public Use
  Company Number: None

PATIENT
  Age: 62 Year
  Sex: Female
  Weight: 85 kg

DRUGS (1)
  1. IBUPROFEN [Suspect]
     Indication: ALVEOLAR OSTEITIS
     Dates: start: 20140416, end: 20140430

REACTIONS (2)
  - Haemorrhage [None]
  - Gastric disorder [None]
